FAERS Safety Report 6399850-4 (Version None)
Quarter: 2009Q4

REPORT INFORMATION
  Report Type: 
  Country: None (occurrence: None)
  Receive Date: 20091014
  Receipt Date: 20091005
  Transmission Date: 20100525
  Serious: Yes (Other)
  Sender: FDA-Public Use
  Company Number: US-PFIZER INC-2009279487

PATIENT
  Sex: Female
  Weight: 51.7 kg

DRUGS (4)
  1. PROVERA [Suspect]
     Indication: HORMONE REPLACEMENT THERAPY
     Dosage: 2.5-10 MG
     Route: 048
     Dates: start: 19920101, end: 19960401
  2. PREMARIN [Suspect]
     Indication: HORMONE REPLACEMENT THERAPY
     Dosage: UNK
     Route: 048
     Dates: start: 19920101, end: 19960401
  3. PREMPRO [Suspect]
     Indication: HORMONE REPLACEMENT THERAPY
     Dosage: UNK
     Route: 048
     Dates: start: 19960501, end: 20011001
  4. SYNTHROID [Concomitant]
     Indication: BASEDOW'S DISEASE
     Dosage: 75 MG, 1X/DAY
     Dates: start: 19800101, end: 20041001

REACTIONS (1)
  - BREAST CANCER [None]
